FAERS Safety Report 24967608 (Version 1)
Quarter: 2025Q1

REPORT INFORMATION
  Report Type: Spontaneous
  Country: JP (occurrence: JP)
  Receive Date: 20250214
  Receipt Date: 20250214
  Transmission Date: 20250409
  Serious: Yes (Death, Other)
  Sender: SANOFI AVENTIS
  Company Number: JP-SAKK-2025SA020034AA

PATIENT
  Age: 1 Year
  Sex: Male

DRUGS (1)
  1. CEREZYME [Suspect]
     Active Substance: IMIGLUCERASE
     Indication: Gaucher^s disease
     Dosage: 60 UNITS/KG/DAY
     Route: 041
     Dates: start: 20240528, end: 20250109

REACTIONS (3)
  - Disease progression [Fatal]
  - Respiratory failure [Fatal]
  - Upper respiratory tract infection [Fatal]

NARRATIVE: CASE EVENT DATE: 20250101
